FAERS Safety Report 8869330 (Version 1)
Quarter: 2012Q4

REPORT INFORMATION
  Report Type: Spontaneous
  Country: US (occurrence: None)
  Receive Date: 20121025
  Receipt Date: 20121025
  Transmission Date: 20130627
  Serious: Yes (Other)
  Sender: FDA-Public Use
  Company Number: None

PATIENT
  Age: 56 Year
  Sex: Female

DRUGS (1)
  1. TARCEVA [Suspect]
     Dosage: 1 tablet everyday po
Duration:: Couple of years per patie--
     Route: 048

REACTIONS (3)
  - Rash [None]
  - Eye irritation [None]
  - Unevaluable event [None]
